FAERS Safety Report 13526975 (Version 1)
Quarter: 2017Q2

REPORT INFORMATION
  Report Type: Spontaneous
  Country: US (occurrence: US)
  Receive Date: 20170509
  Receipt Date: 20170509
  Transmission Date: 20170830
  Serious: Yes (Hospitalization)
  Sender: FDA-Public Use
  Company Number: None

PATIENT
  Age: 60 Year
  Sex: Male
  Weight: 93 kg

DRUGS (6)
  1. TADALAFIL [Concomitant]
     Active Substance: TADALAFIL
  2. ASPIRIN. [Concomitant]
     Active Substance: ASPIRIN
  3. METAXALONE. [Concomitant]
     Active Substance: METAXALONE
  4. CLOMIPHENE [Suspect]
     Active Substance: CLOMIPHENE
     Indication: SECONDARY HYPOGONADISM
     Dates: start: 20170324, end: 20170508
  5. ROSUVASTATIN. [Concomitant]
     Active Substance: ROSUVASTATIN
  6. CLOMIPHENE [Suspect]
     Active Substance: CLOMIPHENE
     Indication: HYPOGONADISM MALE
     Dates: start: 20170324, end: 20170508

REACTIONS (2)
  - Empty sella syndrome [None]
  - Secondary hypogonadism [None]

NARRATIVE: CASE EVENT DATE: 20170508
